FAERS Safety Report 5219162-1 (Version None)
Quarter: 2007Q1

REPORT INFORMATION
  Report Type: 
  Country: None (occurrence: None)
  Receive Date: 20070125
  Receipt Date: 20070117
  Transmission Date: 20070707
  Serious: Yes (Other)
  Sender: FDA-Public Use
  Company Number: GB-GLAXOSMITHKLINE-B0454477A

PATIENT
  Sex: Male

DRUGS (14)
  1. KIVEXA [Suspect]
     Indication: HIV INFECTION
     Route: 048
  2. TENOFOVIR [Concomitant]
  3. TIPRANAVIR [Concomitant]
  4. RITONAVIR [Concomitant]
  5. EFAVIRENZ [Concomitant]
  6. FUZEON [Concomitant]
  7. ROSUVASTATIN [Concomitant]
  8. LISINOPRIL [Concomitant]
  9. METOPROLOL SUCCINATE [Concomitant]
  10. MIRTAZAPINE [Concomitant]
  11. AMLODIPINE [Concomitant]
  12. NOVORAPID [Concomitant]
  13. LANTUS [Concomitant]
  14. ASPIRIN [Concomitant]

REACTIONS (1)
  - CEREBROVASCULAR ACCIDENT [None]
